FAERS Safety Report 4280528-8 (Version None)
Quarter: 2004Q1

REPORT INFORMATION
  Report Type: 
  Country: None (occurrence: None)
  Receive Date: 20040127
  Receipt Date: 20040123
  Transmission Date: 20041129
  Serious: Yes (Death, Hospitalization)
  Sender: FDA-Public Use
  Company Number: 2003165912DE

PATIENT
  Age: 80 Year
  Sex: Female
  Weight: 54 kg

DRUGS (7)
  1. CELEBREX [Suspect]
     Indication: POLYARTHRITIS
     Dosage: 200 MG,QD,ORAL
     Route: 048
  2. FARMITREX (METHOTREXATE) SOLUTION, STERILE [Suspect]
     Indication: RHEUMATOID ARTHRITIS
     Dosage: 12.5 MG/EVERY 2 WEEKS,ORAL
     Route: 048
     Dates: end: 20030516
  3. DAKTAR [Concomitant]
  4. DURAGESIC [Concomitant]
  5. TILIDINE (TILIDINE) [Concomitant]
  6. DECORTIN [Concomitant]
  7. PANTOZOL (PANTOPRAZOLE SODIUM) [Concomitant]

REACTIONS (7)
  - BLOOD GLUCOSE INCREASED [None]
  - BLOOD LACTATE DEHYDROGENASE INCREASED [None]
  - BONE MARROW TOXICITY [None]
  - CIRCULATORY COLLAPSE [None]
  - DRUG INTERACTION [None]
  - PANCYTOPENIA [None]
  - SEPSIS [None]
